FAERS Safety Report 18016768 (Version 2)
Quarter: 2020Q3

REPORT INFORMATION
  Report Type: Report from Study
  Country: US (occurrence: US)
  Receive Date: 20200713
  Receipt Date: 20200714
  Transmission Date: 20201103
  Serious: No
  Sender: FDA-Public Use
  Company Number: US-VANDA PHARMACEUTICALS, INC-2020TASUS003794

PATIENT
  Sex: Female

DRUGS (2)
  1. BENADRYL [Concomitant]
     Active Substance: DIPHENHYDRAMINE HYDROCHLORIDE
     Indication: PRODUCT USED FOR UNKNOWN INDICATION
     Dosage: UNK
  2. HETLIOZ [Suspect]
     Active Substance: TASIMELTEON
     Indication: NON-24-HOUR SLEEP-WAKE DISORDER
     Dosage: Q 24H, 1 H BEFORE BEDTIME, AT THE SAME TIME EVERY NIGHT
     Route: 048
     Dates: start: 20190709

REACTIONS (4)
  - Diarrhoea [Unknown]
  - Appetite disorder [Unknown]
  - Vomiting [Unknown]
  - Product dose omission issue [Unknown]
